FAERS Safety Report 7239562-8 (Version None)
Quarter: 2011Q1

REPORT INFORMATION
  Report Type: 
  Country: None (occurrence: None)
  Receive Date: 20110121
  Receipt Date: 20110114
  Transmission Date: 20110831
  Serious: No
  Sender: FDA-Public Use
  Company Number: US-B.I. PHARMACEUTICALS,INC./RIDGEFIELD-2011-BP-01272BP

PATIENT
  Sex: Female

DRUGS (6)
  1. HYDROCHLOROTHIAZIDE [Concomitant]
  2. AMIODARONE HCL [Concomitant]
  3. PRADAXA [Suspect]
     Indication: ATRIAL FIBRILLATION
     Dosage: 300 MG
     Route: 048
     Dates: start: 20110108
  4. CARVEDILOL [Concomitant]
  5. ESTRADIOL [Concomitant]
  6. SIMVASTATIN [Concomitant]

REACTIONS (4)
  - PAIN [None]
  - SKIN MASS [None]
  - FALL [None]
  - MUSCULOSKELETAL PAIN [None]
